FAERS Safety Report 24908660 (Version 1)
Quarter: 2025Q1

REPORT INFORMATION
  Report Type: Spontaneous
  Country: US (occurrence: US)
  Receive Date: 20250131
  Receipt Date: 20250131
  Transmission Date: 20250409
  Serious: No
  Sender: TAKEDA
  Company Number: US-TAKEDA-2025TUS007644

PATIENT
  Age: 62 Year
  Sex: Female
  Weight: 90 kg

DRUGS (2)
  1. GAMMAGARD LIQUID [Suspect]
     Active Substance: HUMAN IMMUNOGLOBULIN G
     Indication: Immunodeficiency common variable
     Dosage: 40 GRAM, Q4WEEKS
     Dates: start: 20250103
  2. GAMMAGARD S/D [Suspect]
     Active Substance: HUMAN IMMUNOGLOBULIN G
     Indication: Product used for unknown indication
     Dosage: 40 GRAM, Q4WEEKS

REACTIONS (2)
  - Infusion related reaction [Unknown]
  - Chills [Unknown]
